FAERS Safety Report 7086316-1 (Version None)
Quarter: 2010Q4

REPORT INFORMATION
  Report Type: 
  Country: None (occurrence: None)
  Receive Date: 20101105
  Receipt Date: 20101025
  Transmission Date: 20110411
  Serious: Yes (Hospitalization)
  Sender: FDA-Public Use
  Company Number: US-ELI_LILLY_AND_COMPANY-US201010006381

PATIENT
  Age: 82 Year
  Sex: Male

DRUGS (5)
  1. CYMBALTA [Suspect]
     Indication: DEPRESSION
     Dosage: 30 MG, DAILY (1/D)
     Dates: start: 20101006, end: 20101009
  2. RAZADYNE [Concomitant]
  3. NAMENDA [Concomitant]
  4. SIMVASTATIN [Concomitant]
  5. ATENOLOL [Concomitant]

REACTIONS (12)
  - ASTHENIA [None]
  - CONFUSIONAL STATE [None]
  - CYSTIC LYMPHANGIOMA [None]
  - DECREASED APPETITE [None]
  - DIVERTICULITIS [None]
  - FALL [None]
  - HALLUCINATION [None]
  - HEART RATE INCREASED [None]
  - HYPOTENSION [None]
  - MENTAL DISORDER [None]
  - MUSCULAR WEAKNESS [None]
  - SOMNOLENCE [None]
